FAERS Safety Report 25114573 (Version 2)
Quarter: 2025Q2

REPORT INFORMATION
  Report Type: Report from Study
  Country: US (occurrence: US)
  Receive Date: 20250324
  Receipt Date: 20250618
  Transmission Date: 20250717
  Serious: No
  Sender: SANOFI AVENTIS
  Company Number: US-SA-2025SA084550

PATIENT
  Age: 75 Year
  Sex: Female
  Weight: 61.36 kg

DRUGS (1)
  1. DUPIXENT [Suspect]
     Active Substance: DUPILUMAB
     Indication: Chronic obstructive pulmonary disease
     Dosage: 300 MG, QOW
     Route: 058
     Dates: start: 20250203, end: 20250611

REACTIONS (6)
  - Intentional dose omission [Unknown]
  - Dyspnoea [Unknown]
  - Condition aggravated [Unknown]
  - Arthritis [Unknown]
  - Influenza [Unknown]
  - Oropharyngeal pain [Unknown]

NARRATIVE: CASE EVENT DATE: 20250207
